FAERS Safety Report 4809030-9 (Version None)
Quarter: 2005Q4

REPORT INFORMATION
  Report Type: 
  Country: None (occurrence: None)
  Receive Date: 20051024
  Receipt Date: 20050930
  Transmission Date: 20060501
  Serious: Yes (Other)
  Sender: FDA-Public Use
  Company Number: DE 2005 0047

PATIENT
  Age: 40 Year
  Sex: Female

DRUGS (1)
  1. -DOTAREM -DOTAREM -MEGLUMINE GADOTERATE [Suspect]
     Indication: NUCLEAR MAGNETIC RESONANCE IMAGING BRAIN
     Dosage: 12 ML PER DAY, INTRA-VEINOUS
     Route: 042
     Dates: start: 20050922, end: 20050922

REACTIONS (10)
  - ANGIONEUROTIC OEDEMA [None]
  - ARTHRALGIA [None]
  - CHEST DISCOMFORT [None]
  - DYSPNOEA [None]
  - EYELID OEDEMA [None]
  - HEADACHE [None]
  - HYPERSENSITIVITY [None]
  - NASAL CONGESTION [None]
  - OROPHARYNGEAL SWELLING [None]
  - PAIN [None]
